FAERS Safety Report 6658008-1 (Version None)
Quarter: 2010Q1

REPORT INFORMATION
  Report Type: 
  Country: None (occurrence: None)
  Receive Date: 20100330
  Receipt Date: 20100318
  Transmission Date: 20100710
  Serious: Yes (Hospitalization)
  Sender: FDA-Public Use
  Company Number: IT-ELI_LILLY_AND_COMPANY-IT201003005081

PATIENT
  Sex: Male

DRUGS (2)
  1. HUMALOG [Suspect]
     Indication: DIABETES MELLITUS
     Dosage: 16 IU, DAILY (1/D)
     Route: 058
     Dates: start: 20090101
  2. GLIBOMET [Concomitant]
     Indication: DIABETES MELLITUS
     Dosage: 1 D/F, DAILY (1/D)
     Route: 048
     Dates: start: 20090101

REACTIONS (2)
  - HYPERHIDROSIS [None]
  - HYPOGLYCAEMIA [None]
